FAERS Safety Report 19017846 (Version 1)
Quarter: 2021Q1

REPORT INFORMATION
  Report Type: Spontaneous
  Country: US (occurrence: US)
  Receive Date: 20210316
  Receipt Date: 20210316
  Transmission Date: 20210420
  Serious: No
  Sender: FDA-Public Use
  Company Number: None

PATIENT
  Age: 53 Year
  Sex: Female

DRUGS (1)
  1. HUMIRA [Suspect]
     Active Substance: ADALIMUMAB
     Indication: COLITIS ULCERATIVE
     Dosage: ?          OTHER FREQUENCY:EVERY 14 DAYS;?
     Dates: start: 20200501

REACTIONS (4)
  - Therapy interrupted [None]
  - Flatulence [None]
  - Malaise [None]
  - Frequent bowel movements [None]

NARRATIVE: CASE EVENT DATE: 20210315
